FAERS Safety Report 12305429 (Version 1)
Quarter: 2016Q2

REPORT INFORMATION
  Report Type: Spontaneous
  Country: US (occurrence: None)
  Receive Date: 20160425
  Receipt Date: 20160425
  Transmission Date: 20160815
  Serious: No
  Sender: FDA-Public Use
  Company Number: None

PATIENT
  Age: 56 Year
  Sex: Male

DRUGS (1)
  1. RIBAVIRIN CAP 200MG [Suspect]
     Active Substance: RIBAVIRIN
     Route: 048
     Dates: start: 20160319, end: 20160423

REACTIONS (4)
  - Suicidal ideation [None]
  - Feeling abnormal [None]
  - Insomnia [None]
  - Crying [None]

NARRATIVE: CASE EVENT DATE: 20160423
